FAERS Safety Report 9132512 (Version 4)
Quarter: 2013Q3

REPORT INFORMATION
  Report Type: Spontaneous
  Country: PT (occurrence: PT)
  Receive Date: 20130301
  Receipt Date: 20130708
  Transmission Date: 20140515
  Serious: Yes (Other)
  Sender: FDA-Public Use
  Company Number: PT-GLAXOSMITHKLINE-B0870667A

PATIENT
  Age: 74 Year
  Sex: Male
  Weight: 93 kg

DRUGS (3)
  1. ALLI [Suspect]
     Indication: WEIGHT DECREASED
     Dosage: 60MG SINGLE DOSE
     Route: 048
     Dates: start: 20130222, end: 20130222
  2. METFORMIN [Concomitant]
  3. ASPIRIN [Concomitant]

REACTIONS (10)
  - Dysentery [Recovered/Resolved]
  - Abdominal distension [Recovered/Resolved]
  - Diarrhoea [Recovered/Resolved]
  - Tremor [Recovered/Resolved]
  - Abdominal discomfort [Recovered/Resolved]
  - Vomiting [Recovered/Resolved]
  - Nausea [Recovered/Resolved]
  - Pallor [Recovered/Resolved]
  - Abdominal pain [Unknown]
  - Product quality issue [Unknown]
